FAERS Safety Report 9617693 (Version 2)
Quarter: 2015Q1

REPORT INFORMATION
  Report Type: Report from Study
  Country: US (occurrence: US)
  Receive Date: 20131011
  Receipt Date: 20150211
  Transmission Date: 20150721
  Serious: Yes (Hospitalization)
  Sender: FDA-Public Use
  Company Number: US-PFIZER INC-2013283728

PATIENT
  Age: 34 Year
  Sex: Female
  Weight: 95 kg

DRUGS (45)
  1. ALBUTEROL JET NEBS [Concomitant]
     Indication: ASTHMA
     Dosage: 2 ML, 4X/DAY (Q6H) PRN, ROUTE: INHALED
     Route: 055
     Dates: start: 201209
  2. BENADRYL [Concomitant]
     Active Substance: DIPHENHYDRAMINE HYDROCHLORIDE
     Indication: PRURITUS GENERALISED
     Dosage: 25 MG, AS NEEDED Q4H
     Route: 048
     Dates: start: 201204
  3. DEXAMETHASONE OPTHAL SOL 0.1 % [Concomitant]
     Indication: VISION BLURRED
     Dosage: 2 DROPS OU, Q4H, ROUTE: TOPICALLY TO EYES
     Route: 047
     Dates: start: 201304
  4. AMOXICILLIN. [Concomitant]
     Active Substance: AMOXICILLIN
     Indication: INFECTION PROPHYLAXIS
     Dosage: 500 MG, 3X/DAY (Q8H)
     Route: 048
     Dates: start: 20130524, end: 20130627
  5. CALCIUM/VITAMIN D [Concomitant]
     Active Substance: CALCIUM\VITAMIN D
     Indication: MINERAL SUPPLEMENTATION
  6. LORAZEPAM. [Concomitant]
     Active Substance: LORAZEPAM
     Indication: ANXIETY
     Dosage: 1 MG, AS NEEDED Q4H
     Route: 048
     Dates: start: 20130503
  7. METFORMIN [Concomitant]
     Active Substance: METFORMIN HYDROCHLORIDE
     Indication: DIABETES MELLITUS
     Dosage: 1000 MG (2-500MG TABS), 2X/DAY
     Route: 048
     Dates: start: 201204
  8. VORICONAZOLE. [Concomitant]
     Active Substance: VORICONAZOLE
     Indication: ANTIFUNGAL PROPHYLAXIS
     Dosage: 300 MG, 2X/DAY
     Route: 048
     Dates: start: 20130701, end: 20130714
  9. TYLENOL [Concomitant]
     Active Substance: ACETAMINOPHEN
     Indication: ABDOMINAL PAIN UPPER
     Dosage: 650 MG, 4X/DAY (Q6H) PRN
     Route: 048
     Dates: start: 201204
  10. ALBUTEROL. [Concomitant]
     Active Substance: ALBUTEROL
     Indication: ASTHMA
     Dosage: 2 PUFFS, Q4H, PRN, ROUTE: INHALED
     Route: 055
     Dates: start: 201204
  11. LEVALBUTEROL [Concomitant]
     Active Substance: LEVALBUTEROL
     Indication: ASTHMA
     Dosage: 2 ML, 4X/DAY (Q6H) ROUTE: INHALED
     Route: 055
     Dates: start: 20130702, end: 20130702
  12. LISINOPRIL. [Concomitant]
     Active Substance: LISINOPRIL
     Indication: HYPERTENSION
     Dosage: 5 MG, DAILY
     Route: 048
     Dates: start: 201204
  13. NEURONTIN [Concomitant]
     Active Substance: GABAPENTIN
     Indication: NEUROPATHY PERIPHERAL
     Dosage: 400 MG, 3X/DAY
     Route: 048
     Dates: start: 201204
  14. AMPICILLIN [Concomitant]
     Active Substance: AMPICILLIN
     Indication: PROPHYLAXIS
     Dosage: 500 MG, 4X/DAY (Q6H)
     Route: 048
     Dates: start: 20130523, end: 20130602
  15. ZOLOFT [Concomitant]
     Active Substance: SERTRALINE HYDROCHLORIDE
     Indication: DEPRESSION
     Dosage: 50 MG, DAILY
     Route: 048
     Dates: start: 20130516
  16. DAPTOMYCIN. [Concomitant]
     Active Substance: DAPTOMYCIN
     Indication: INFECTION PROPHYLAXIS
     Dosage: 600 MG, 1X/DAY (Q24H)
     Route: 042
     Dates: start: 20130701, end: 20130711
  17. INSULIN ASPART [Concomitant]
     Active Substance: INSULIN ASPART
     Indication: DIABETES MELLITUS
     Dosage: SLIDING SCALE, Q1H
     Route: 058
     Dates: start: 20130503
  18. HYDROCHLOROTHIAZIDE. [Concomitant]
     Active Substance: HYDROCHLOROTHIAZIDE
     Indication: HYPERTENSION
     Dosage: UNK, DAILY
     Route: 048
     Dates: start: 201204
  19. POTASSIUM CHLORIDE. [Concomitant]
     Active Substance: POTASSIUM CHLORIDE
     Indication: ELECTROLYTE SUBSTITUTION THERAPY
     Dosage: 40 MEQ (2-20MEQ TABS), 2X/DAY
     Route: 048
     Dates: start: 20130514
  20. ALLOPURINOL. [Concomitant]
     Active Substance: ALLOPURINOL
     Indication: HYPERURICAEMIA
     Dosage: 300 MG, DAILY
     Route: 048
     Dates: start: 201207
  21. INSULIN, REGULAR [Concomitant]
     Active Substance: INSULIN NOS
     Indication: DIABETES MELLITUS
     Dosage: SLIDING SCALE, FREQUENCY: AC AND HS
     Route: 058
     Dates: start: 201204
  22. SIMVASTATIN. [Concomitant]
     Active Substance: SIMVASTATIN
     Indication: HYPERLIPIDAEMIA
     Dosage: 40 MG, DAILY
     Route: 048
     Dates: start: 201204
  23. AZTREONAM. [Concomitant]
     Active Substance: AZTREONAM
     Indication: INFECTION PROPHYLAXIS
     Dosage: 2 G, 3X/DAY (Q8H)
     Route: 042
     Dates: start: 20130630, end: 20130707
  24. CALCIUM/VITAMIN D [Concomitant]
     Active Substance: CALCIUM\VITAMIN D
     Indication: VITAMIN SUPPLEMENTATION
     Dosage: 600 MG, 3X/DAY
     Route: 048
     Dates: start: 20130509
  25. HYDROXYZINE HYDROCHLORIDE. [Concomitant]
     Active Substance: HYDROXYZINE HYDROCHLORIDE
     Indication: ANXIETY
     Dosage: 10 MG, 4X/DAY (Q6H)
     Route: 048
     Dates: start: 201304
  26. MAGNESIUM [Concomitant]
     Active Substance: MAGNESIUM
     Indication: MINERAL SUPPLEMENTATION
     Dosage: 1-2 GMS, AS NEEDED
     Route: 042
     Dates: start: 20130516
  27. AMLODIPINE [Concomitant]
     Active Substance: AMLODIPINE BESYLATE
     Indication: HYPERTENSION
     Dosage: 2.5 MG (1/2-5MG TAB), DAILY
     Route: 048
     Dates: start: 20130528
  28. PROMETHAZINE [Concomitant]
     Active Substance: PROMETHAZINE\PROMETHAZINE HYDROCHLORIDE
     Indication: NAUSEA
     Dosage: 25 MG, AS NEEDED Q4H
     Route: 048
     Dates: start: 201204
  29. AMBIEN [Concomitant]
     Active Substance: ZOLPIDEM TARTRATE
     Indication: INSOMNIA
     Dosage: 5 MG (1 DF), 1X/DAY (QHS)
     Route: 048
     Dates: start: 20130517
  30. NORMAL SALINE 0.9 % [Concomitant]
     Indication: PROPHYLAXIS AGAINST DEHYDRATION
     Dosage: 1000 ML, AS NEEDED
     Route: 042
     Dates: start: 20130503
  31. NEUPOGEN [Concomitant]
     Active Substance: FILGRASTIM
     Indication: NEUTROPENIA
     Dosage: 1 ML, DAILY PRN
     Route: 058
     Dates: start: 20130702, end: 20130707
  32. LASIX [Concomitant]
     Active Substance: FUROSEMIDE
     Indication: PULMONARY OEDEMA
     Dosage: 20 MG, DAILY
     Route: 048
     Dates: start: 20130702, end: 20130709
  33. ACYCLOVIR. [Concomitant]
     Active Substance: ACYCLOVIR
     Indication: ANTIVIRAL PROPHYLAXIS
     Dosage: 400 MG, 2X/DAY
     Route: 048
     Dates: start: 20130503, end: 20130714
  34. TUMS [Concomitant]
     Active Substance: CALCIUM CARBONATE
     Indication: GASTROOESOPHAGEAL REFLUX DISEASE
     Dosage: 500 MG, AS NEEDED
     Route: 048
     Dates: start: 20130514
  35. PROCHLORPERAZINE. [Concomitant]
     Active Substance: PROCHLORPERAZINE
     Indication: NAUSEA
     Dosage: 10 MG, 4X/DAY (Q6H), PRN
     Route: 048
     Dates: start: 201204
  36. MORPHINE [Concomitant]
     Active Substance: MORPHINE
     Indication: PAIN
     Dosage: 2 MG, AS NEEDED
     Route: 042
     Dates: start: 20130630, end: 20130703
  37. NEULASTA [Concomitant]
     Active Substance: PEGFILGRASTIM
     Indication: NEUTROPENIA
     Dosage: 6 MG, AS NEEDED
     Route: 058
     Dates: start: 20130514
  38. CYTARABINE. [Suspect]
     Active Substance: CYTARABINE
     Indication: ACUTE LYMPHOCYTIC LEUKAEMIA
     Dosage: 3G/M2, (ADMIN 6 GM), 2X/DAY (EVERY 12 HOURS)
     Route: 042
     Dates: start: 20130502, end: 20130614
  39. TYLENOL [Concomitant]
     Active Substance: ACETAMINOPHEN
     Indication: PAIN IN EXTREMITY
     Dosage: 650 MG, PRN, Q4H
     Route: 048
     Dates: start: 20130502
  40. TYLENOL [Concomitant]
     Active Substance: ACETAMINOPHEN
     Indication: BODY TEMPERATURE
  41. BENADRYL [Concomitant]
     Active Substance: DIPHENHYDRAMINE HYDROCHLORIDE
     Indication: PREMEDICATION
     Dosage: 25 MG, AS NEEDED Q4H
     Route: 048
     Dates: start: 20130503
  42. FAMOTIDINE. [Concomitant]
     Active Substance: FAMOTIDINE
     Indication: GASTROOESOPHAGEAL REFLUX DISEASE
     Dosage: 20 MG, 2X/DAY
     Route: 048
     Dates: start: 201204
  43. DEXAMETHASONE. [Concomitant]
     Active Substance: DEXAMETHASONE
     Indication: DRUG TOLERANCE INCREASED
     Dosage: 10 MG, DAILY PRN
     Route: 042
     Dates: start: 20130502
  44. ZOFRAN [Concomitant]
     Active Substance: ONDANSETRON HYDROCHLORIDE
     Indication: NAUSEA
     Dosage: 24 MG, DAILY
     Route: 048
     Dates: start: 201304
  45. VANCOMYCIN [Concomitant]
     Active Substance: VANCOMYCIN
     Indication: ANTIBIOTIC PROPHYLAXIS
     Dosage: 1500 MG, 2X/DAY (Q12H)
     Route: 042
     Dates: start: 20130630, end: 20130708

REACTIONS (6)
  - Pneumococcal infection [None]
  - Disease progression [None]
  - Streptococcal infection [None]
  - Respiratory failure [Recovered/Resolved]
  - Sepsis [None]
  - Neutropenia [None]

NARRATIVE: CASE EVENT DATE: 20130704
